FAERS Safety Report 21646891 (Version 1)
Quarter: 2022Q4

REPORT INFORMATION
  Report Type: Spontaneous
  Country: US (occurrence: US)
  Receive Date: 20221127
  Receipt Date: 20221127
  Transmission Date: 20230112
  Serious: Yes (Hospitalization)
  Sender: FDA-Public Use
  Company Number: US-TEVA-2022-US-2829676

PATIENT
  Sex: Female

DRUGS (3)
  1. TRAMADOL [Interacting]
     Active Substance: TRAMADOL
     Indication: Product used for unknown indication
     Route: 065
     Dates: start: 2022, end: 2022
  2. LENVIMA [Interacting]
     Active Substance: LENVATINIB
     Indication: Neoplasm malignant
  3. LENVIMA [Interacting]
     Active Substance: LENVATINIB

REACTIONS (3)
  - Headache [Unknown]
  - Drug interaction [Unknown]
  - Drug hypersensitivity [Unknown]

NARRATIVE: CASE EVENT DATE: 20221101
